FAERS Safety Report 8663013 (Version 2)
Quarter: 2012Q4

REPORT INFORMATION
  Report Type: 
  Country: EC (occurrence: EC)
  Receive Date: 20120712
  Receipt Date: 20120927
  Transmission Date: 20130627
  Serious: Yes (Other)
  Sender: FDA-Public Use
  Company Number: PHHY2012EC053959

PATIENT
  Sex: Female

DRUGS (1)
  1. EXELON [Suspect]
     Indication: DEMENTIA ALZHEIMER^S TYPE
     Dosage: 6 DF (18 mg), daily (3 cap in the moring and 3 cap in the afternoon)
     Route: 048
     Dates: start: 20110805, end: 201206

REACTIONS (2)
  - Hypertensive crisis [Recovering/Resolving]
  - Abdominal pain upper [Recovering/Resolving]
